FAERS Safety Report 4366870-0 (Version None)
Quarter: 2004Q2

REPORT INFORMATION
  Report Type: 
  Country: None (occurrence: None)
  Receive Date: 20040526
  Receipt Date: 20040526
  Transmission Date: 20050107
  Serious: Yes (Disabling)
  Sender: FDA-Public Use
  Company Number: None

PATIENT
  Age: 41 Year
  Sex: Male
  Weight: 58.9676 kg

DRUGS (3)
  1. DURAGESIC [Suspect]
     Indication: BACK PAIN
     Dosage: 1 PATCH TOPICALLY EVERY 3 DAYS
     Route: 061
  2. DURAGESIC [Suspect]
     Indication: PAIN MANAGEMENT
     Dosage: 1 PATCH TOPICALLY EVERY 3 DAYS
     Route: 061
  3. PAXIL [Concomitant]

REACTIONS (14)
  - BACK INJURY [None]
  - CARDIAC DISORDER [None]
  - CONDITION AGGRAVATED [None]
  - DIZZINESS [None]
  - FALL [None]
  - FATIGUE [None]
  - FEELING DRUNK [None]
  - HEADACHE [None]
  - LIMB INJURY [None]
  - MENTAL IMPAIRMENT [None]
  - OVERDOSE [None]
  - PHARMACEUTICAL PRODUCT COMPLAINT [None]
  - RESPIRATION ABNORMAL [None]
  - TREMOR [None]
